FAERS Safety Report 23769480 (Version 3)
Quarter: 2025Q2

REPORT INFORMATION
  Report Type: Spontaneous
  Country: US (occurrence: US)
  Receive Date: 20240422
  Receipt Date: 20250411
  Transmission Date: 20250717
  Serious: Yes (Other)
  Sender: ABBVIE
  Company Number: US-ABBVIE-5727925

PATIENT
  Age: 39 Year
  Sex: Female
  Weight: 68 kg

DRUGS (2)
  1. LILETTA [Suspect]
     Active Substance: LEVONORGESTREL
     Indication: Contraception
     Route: 015
     Dates: start: 202004
  2. DUPIXENT [Concomitant]
     Active Substance: DUPILUMAB
     Indication: Psoriasis

REACTIONS (9)
  - Induced abortion failed [Not Recovered/Not Resolved]
  - Abdominal pain [Not Recovered/Not Resolved]
  - Maternal exposure during pregnancy [Unknown]
  - Haemorrhage [Recovered/Resolved]
  - Vaginal haemorrhage [Recovered/Resolved]
  - Menstruation irregular [Not Recovered/Not Resolved]
  - Psoriasis [Unknown]
  - Device dislocation [Unknown]
  - Uterine perforation [Unknown]

NARRATIVE: CASE EVENT DATE: 20240101
